FAERS Safety Report 5333519-X (Version None)
Quarter: 2007Q2

REPORT INFORMATION
  Report Type: 
  Country: None (occurrence: None)
  Receive Date: 20070521
  Receipt Date: 20070508
  Transmission Date: 20071010
  Serious: Yes (Other)
  Sender: FDA-Public Use
  Company Number: 230112K07USA

PATIENT
  Age: 50 Year
  Sex: Female

DRUGS (4)
  1. REBIF [Suspect]
     Indication: MULTIPLE SCLEROSIS
     Dosage: SEE IMAGE
     Route: 058
     Dates: start: 20021009, end: 20060301
  2. REBIF [Suspect]
     Indication: MULTIPLE SCLEROSIS
     Dosage: SEE IMAGE
     Route: 058
     Dates: start: 20060301
  3. DILANTIN [Suspect]
     Dosage: SEE IMAGE
     Dates: start: 20060301, end: 20070101
  4. DILANTIN [Suspect]
     Dosage: SEE IMAGE
     Dates: start: 20070101

REACTIONS (8)
  - BURNING SENSATION [None]
  - DRUG LEVEL DECREASED [None]
  - GRAND MAL CONVULSION [None]
  - HEADACHE [None]
  - HYPOACUSIS [None]
  - HYPOAESTHESIA [None]
  - MYALGIA [None]
  - PRURITUS [None]
